FAERS Safety Report 18393967 (Version 2)
Quarter: 2020Q4

REPORT INFORMATION
  Report Type: Spontaneous
  Country: US (occurrence: US)
  Receive Date: 20201016
  Receipt Date: 20201021
  Transmission Date: 20210114
  Serious: Yes (Other)
  Sender: FDA-Public Use
  Company Number: US-MYLANLABS-2020M1087027

PATIENT
  Sex: Female

DRUGS (1)
  1. TAMOXIFEN [Suspect]
     Active Substance: TAMOXIFEN
     Indication: BREAST CANCER
     Dosage: UNK
     Route: 065

REACTIONS (5)
  - Nerve injury [Unknown]
  - Retinal detachment [Unknown]
  - Visual impairment [Unknown]
  - Scar pain [Unknown]
  - Blood glucose increased [Unknown]
